FAERS Safety Report 21286943 (Version 2)
Quarter: 2022Q3

REPORT INFORMATION
  Report Type: Spontaneous
  Country: FR (occurrence: FR)
  Receive Date: 20220902
  Receipt Date: 20220906
  Transmission Date: 20221027
  Serious: Yes (Other)
  Sender: FDA-Public Use
  Company Number: FR-AFSSAPS-PP20220732

PATIENT
  Age: 25 Year
  Sex: Male
  Weight: 60 kg

DRUGS (1)
  1. OPDIVO [Suspect]
     Active Substance: NIVOLUMAB
     Indication: Keratinising squamous cell carcinoma of nasopharynx
     Dosage: INDICATION (1 SEUL) ?CHIMIOTH?RAPIE ( CARCINOME ?PIDERMO?DE DU RHINOPHARYNX
     Route: 042
     Dates: start: 20220411, end: 20220722

REACTIONS (2)
  - Face oedema [Recovered/Resolved]
  - Off label use [Unknown]

NARRATIVE: CASE EVENT DATE: 20220722
